FAERS Safety Report 4516228-6 (Version None)
Quarter: 2004Q4

REPORT INFORMATION
  Report Type: 
  Country: None (occurrence: None)
  Receive Date: 20041129
  Receipt Date: 20041117
  Transmission Date: 20050328
  Serious: Yes (Death, Hospitalization, Congenital Anomaly)
  Sender: FDA-Public Use
  Company Number: US-JNJFOC-20041102461

PATIENT
  Age: 1 Day
  Sex: Female

DRUGS (1)
  1. TYLENOL COLD MEDICATION (ACETAMINOPHEN/DEXTROMETHORPHAN HBR/PSEUDOEPHE [Suspect]
     Indication: DRUG USE FOR UNKNOWN INDICATION
     Dosage: MATERNAL USE: ^1.5 PACKETS^

REACTIONS (6)
  - CARDIAC VALVE DISEASE [None]
  - CONGENITAL HAND MALFORMATION [None]
  - DRUG EXPOSURE DURING PREGNANCY [None]
  - HEART DISEASE CONGENITAL [None]
  - MULTIPLE CONGENITAL ABNORMALITIES [None]
  - PALATAL DISORDER [None]
